FAERS Safety Report 25152375 (Version 1)
Quarter: 2025Q2

REPORT INFORMATION
  Report Type: Spontaneous
  Country: GB (occurrence: GB)
  Receive Date: 20250402
  Receipt Date: 20250402
  Transmission Date: 20250717
  Serious: Yes (Disabling)
  Sender: SANDOZ
  Company Number: None

PATIENT
  Age: 65 Year
  Sex: Female
  Weight: 83 kg

DRUGS (1)
  1. PIOGLITAZONE [Suspect]
     Active Substance: PIOGLITAZONE
     Indication: Insulin-requiring type 2 diabetes mellitus
     Dosage: 15 MG, QD MPORNING
     Route: 065
     Dates: start: 20240822, end: 20250324

REACTIONS (1)
  - Dyspnoea [Not Recovered/Not Resolved]
